FAERS Safety Report 17035571 (Version 1)
Quarter: 2019Q4

REPORT INFORMATION
  Report Type: Spontaneous
  Country: CO (occurrence: CO)
  Receive Date: 20191114
  Receipt Date: 20191114
  Transmission Date: 20200122
  Serious: Yes (Hospitalization, Disabling)
  Sender: FDA-Public Use
  Company Number: None

PATIENT
  Age: 34 Year
  Sex: Female
  Weight: 50 kg

DRUGS (1)
  1. YANBAL SENTIVA EXTRACTO DIVINO YOUTH RENEWAL MOISTURIZING SPF 20 [Suspect]
     Active Substance: AVOBENZONE\OCTISALATE\OCTOCRYLENE
     Indication: DRY SKIN
     Route: 062
     Dates: start: 20191111, end: 20191112

REACTIONS (6)
  - Skin tightness [None]
  - Rash [None]
  - Feeling hot [None]
  - Pruritus [None]
  - Burning sensation [None]
  - Erythema [None]

NARRATIVE: CASE EVENT DATE: 20191113
